FAERS Safety Report 25724456 (Version 1)
Quarter: 2025Q3

REPORT INFORMATION
  Report Type: Other
  Country: CN (occurrence: CN)
  Receive Date: 20250826
  Receipt Date: 20250826
  Transmission Date: 20251021
  Serious: Yes (Disabling, Other)
  Sender: QILU PHARMACEUTICAL
  Company Number: CN-QILU PHARMACEUTICAL CO.LTD.-QLU-000213-2025

PATIENT
  Age: 71 Year
  Sex: Female
  Weight: 54 kg

DRUGS (3)
  1. EXEMESTANE [Suspect]
     Active Substance: EXEMESTANE
     Indication: Breast cancer
     Dosage: 25 MG ONCE DAILY
     Route: 048
     Dates: start: 20250106, end: 20250721
  2. DALPICICLIB ISETHIONATE [Suspect]
     Active Substance: DALPICICLIB ISETHIONATE
     Indication: Breast cancer
     Dosage: 125 MG ONCE DAILY
     Route: 048
     Dates: start: 20250106, end: 20250721
  3. DALPICICLIB ISETHIONATE [Suspect]
     Active Substance: DALPICICLIB ISETHIONATE
     Indication: Endocrine disorder

REACTIONS (1)
  - Myelosuppression [Recovered/Resolved]

NARRATIVE: CASE EVENT DATE: 20250721
